FAERS Safety Report 16297268 (Version 3)
Quarter: 2019Q3

REPORT INFORMATION
  Report Type: Report from Study
  Country: FR (occurrence: FR)
  Receive Date: 20190510
  Receipt Date: 20190815
  Transmission Date: 20191004
  Serious: Yes (Hospitalization)
  Sender: FDA-Public Use
  Company Number: FR-ROCHE-2311034

PATIENT
  Age: 60 Year
  Sex: Male
  Weight: 72 kg

DRUGS (15)
  1. BISOPROLOL [Concomitant]
     Active Substance: BISOPROLOL
     Indication: HYPERTENSION
     Route: 048
  2. DOLIPRANE [Concomitant]
     Active Substance: ACETAMINOPHEN
     Indication: TUMOUR PAIN
     Route: 048
  3. SULFAMETHOXAZOLE/TRIMETHOPRIM [Suspect]
     Active Substance: SULFAMETHOXAZOLE\TRIMETHOPRIM
     Indication: URINARY TRACT INFECTION
     Route: 065
     Dates: start: 20190411, end: 20190425
  4. CEFIXIME. [Concomitant]
     Active Substance: CEFIXIME
     Route: 048
     Dates: end: 20190516
  5. CORTANCYL [Concomitant]
     Active Substance: PREDNISONE
     Indication: HEADACHE
     Route: 048
     Dates: start: 20190617
  6. ATEZOLIZUMAB. [Suspect]
     Active Substance: ATEZOLIZUMAB
     Indication: METASTASES TO CENTRAL NERVOUS SYSTEM
     Dosage: 12:47
     Route: 042
     Dates: start: 20190411
  7. UROREC [Concomitant]
     Active Substance: SILODOSIN
     Indication: URETHRAL STENOSIS
     Route: 048
  8. FAZOL [ISOCONAZOLE NITRATE] [Concomitant]
  9. RAMIPRIL. [Concomitant]
     Active Substance: RAMIPRIL
     Route: 048
     Dates: start: 20190411, end: 201904
  10. TIORFAN [Concomitant]
     Active Substance: RACECADOTRIL
     Route: 048
     Dates: start: 20190423
  11. AVLOCARDYL [PROPRANOLOL] [Concomitant]
     Active Substance: PROPRANOLOL HYDROCHLORIDE
     Indication: CLUSTER HEADACHE
     Route: 048
     Dates: end: 20190520
  12. AVODART [Concomitant]
     Active Substance: DUTASTERIDE
     Route: 048
  13. COBIMETINIB. [Suspect]
     Active Substance: COBIMETINIB
     Indication: METASTASES TO CENTRAL NERVOUS SYSTEM
     Dosage: THREE TABLETS OF 20 MG EACH (AS PER PROTOCOL)?DATE OF MOST RECENT DOSE OF COBIMETINIB (60MG): 21/APR
     Route: 048
     Dates: start: 20190411
  14. ELISOR [Concomitant]
     Active Substance: PRAVASTATIN SODIUM
     Indication: HYPERCHOLESTEROLAEMIA
     Route: 048
  15. BISOPROLOL [Concomitant]
     Active Substance: BISOPROLOL
     Indication: EJECTION FRACTION DECREASED

REACTIONS (2)
  - Toxic skin eruption [Recovered/Resolved]
  - Rash maculo-papular [Recovered/Resolved]

NARRATIVE: CASE EVENT DATE: 20190420
